FAERS Safety Report 21256971 (Version 1)
Quarter: 2022Q3

REPORT INFORMATION
  Report Type: Spontaneous
  Country: US (occurrence: US)
  Receive Date: 20220826
  Receipt Date: 20220826
  Transmission Date: 20221027
  Serious: Yes (Other)
  Sender: FDA-Public Use
  Company Number: US-NOVOPROD-950038

PATIENT
  Age: 70 Year
  Sex: Female
  Weight: 49.895 kg

DRUGS (8)
  1. TRESIBA [Suspect]
     Active Substance: INSULIN DEGLUDEC
     Indication: Type 1 diabetes mellitus
     Dosage: UNK
     Route: 058
     Dates: start: 20190329
  2. TRESIBA [Suspect]
     Active Substance: INSULIN DEGLUDEC
     Dosage: 6 IU WHEN THE PATIENT^S BLOOD GLUCOSE WAS 235 MG/DL.
     Route: 058
     Dates: start: 20220817
  3. TRESIBA [Suspect]
     Active Substance: INSULIN DEGLUDEC
     Dosage: 6 TO 7 IU, QD (EVERY MORNING)
     Route: 058
  4. TRESIBA [Suspect]
     Active Substance: INSULIN DEGLUDEC
     Dosage: 6 IU WHEN THE PATIENT^S BLOOD GLUCOSE WAS 148 MG/DL.
     Route: 058
     Dates: start: 20220816
  5. CREON [Suspect]
     Active Substance: PANCRELIPASE AMYLASE\PANCRELIPASE LIPASE\PANCRELIPASE PROTEASE
     Indication: Pancreatic enzyme replacement therapy
     Dosage: UNK
  6. HUMALOG [Suspect]
     Active Substance: INSULIN LISPRO
     Dosage: 5 IU WHEN PATIENT^S GLUCOSE WAS 235 MG/DL.
     Dates: start: 20220817
  7. HUMALOG [Suspect]
     Active Substance: INSULIN LISPRO
     Indication: Type 1 diabetes mellitus
     Dosage: UNK (EVERY 4 HOURS)
     Dates: start: 20190329
  8. HUMALOG [Suspect]
     Active Substance: INSULIN LISPRO
     Dosage: 8 IU WHEN PATIENT^S GLUCOSE WAS 324 MG/DL.
     Dates: start: 20220816

REACTIONS (3)
  - Cataract [Not Recovered/Not Resolved]
  - Blood glucose fluctuation [Not Recovered/Not Resolved]
  - Hunger [Unknown]

NARRATIVE: CASE EVENT DATE: 20190410
